FAERS Safety Report 17906370 (Version 1)
Quarter: 2020Q2

REPORT INFORMATION
  Report Type: Spontaneous
  Country: US (occurrence: US)
  Receive Date: 20200616
  Receipt Date: 20200616
  Transmission Date: 20200714
  Serious: No
  Sender: FDA-Public Use
  Company Number: US-ROCHE-2508444

PATIENT
  Age: 47 Year
  Sex: Female
  Weight: 61.29 kg

DRUGS (2)
  1. ACTEMRA [Suspect]
     Active Substance: TOCILIZUMAB
     Indication: RHEUMATOID ARTHRITIS
     Dosage: INCREASED TO ONCE EVERY WEEK AFTER SEVERAL MONTHS
     Route: 058
     Dates: start: 201904, end: 201909
  2. ACTEMRA [Suspect]
     Active Substance: TOCILIZUMAB
     Dosage: INCREASED DUE TO NO CLINICAL RESPONSE
     Route: 058
     Dates: start: 201904, end: 201909

REACTIONS (2)
  - Drug ineffective [Unknown]
  - Blood cholesterol increased [Recovering/Resolving]

NARRATIVE: CASE EVENT DATE: 201904
